FAERS Safety Report 5019499-5 (Version None)
Quarter: 2006Q2

REPORT INFORMATION
  Report Type: 
  Country: None (occurrence: None)
  Receive Date: 20060605
  Receipt Date: 20060605
  Transmission Date: 20061013
  Serious: Yes (Other)
  Sender: FDA-Public Use
  Company Number: None

PATIENT
  Sex: Female
  Weight: 85.7298 kg

DRUGS (1)
  1. MORPHINE [Suspect]
     Indication: PROCEDURAL PAIN
     Dosage: 4MG  Q5M  IV     PCA USE
     Route: 042
     Dates: start: 20060509, end: 20060510

REACTIONS (2)
  - POST PROCEDURAL COMPLICATION [None]
  - PRURITUS [None]
